FAERS Safety Report 15152657 (Version 1)
Quarter: 2018Q3

REPORT INFORMATION
  Report Type: Spontaneous
  Country: US (occurrence: US)
  Receive Date: 20180717
  Receipt Date: 20180717
  Transmission Date: 20181010
  Serious: Yes (Other)
  Sender: FDA-Public Use
  Company Number: US-AUROBINDO-AUR-APL-2018-035348

PATIENT
  Age: 26 Year
  Sex: Male

DRUGS (22)
  1. DEXAMETHASONE. [Suspect]
     Active Substance: DEXAMETHASONE
     Indication: PHILADELPHIA CHROMOSOME POSITIVE
     Dosage: UNK
     Route: 065
  2. DEXAMETHASONE. [Suspect]
     Active Substance: DEXAMETHASONE
     Indication: ACUTE LYMPHOCYTIC LEUKAEMIA
  3. VINCRISTINE [Suspect]
     Active Substance: VINCRISTINE
     Indication: PHILADELPHIA CHROMOSOME POSITIVE
     Dosage: UNK
     Route: 065
  4. NILOTINIB [Suspect]
     Active Substance: NILOTINIB
     Indication: PHILADELPHIA CHROMOSOME POSITIVE
     Dosage: 400 MILLIGRAM, TWO TIMES A DAY
     Route: 065
  5. MITOXANTRONE [Suspect]
     Active Substance: MITOXANTRONE HYDROCHLORIDE
     Indication: ACUTE LYMPHOCYTIC LEUKAEMIA
  6. IMATINIB [Suspect]
     Active Substance: IMATINIB
     Indication: PHILADELPHIA CHROMOSOME POSITIVE
     Dosage: UNK
     Route: 065
  7. BLINATUMOMAB [Suspect]
     Active Substance: BLINATUMOMAB
     Indication: ACUTE LYMPHOCYTIC LEUKAEMIA
  8. VORICONAZOLE. [Suspect]
     Active Substance: VORICONAZOLE
     Indication: NEUTROPENIA
     Dosage: 200 MILLIGRAM, TWO TIMES A DAY
     Route: 048
  9. VINCRISTINE [Suspect]
     Active Substance: VINCRISTINE
     Indication: ACUTE LYMPHOCYTIC LEUKAEMIA
  10. CLOFARABINE. [Suspect]
     Active Substance: CLOFARABINE
     Indication: DISEASE PROGRESSION
     Dosage: UNK
     Route: 065
  11. CYCLOPHOSPHAMIDE. [Suspect]
     Active Substance: CYCLOPHOSPHAMIDE
     Indication: ACUTE LYMPHOCYTIC LEUKAEMIA
  12. NILOTINIB [Suspect]
     Active Substance: NILOTINIB
     Indication: ACUTE LYMPHOCYTIC LEUKAEMIA
  13. IMATINIB [Suspect]
     Active Substance: IMATINIB
     Indication: ACUTE LYMPHOCYTIC LEUKAEMIA
  14. CYTARABINE. [Suspect]
     Active Substance: CYTARABINE
     Indication: ACUTE LYMPHOCYTIC LEUKAEMIA
  15. BLINATUMOMAB [Suspect]
     Active Substance: BLINATUMOMAB
     Indication: PHILADELPHIA CHROMOSOME POSITIVE
     Dosage: FOR LESS THAN TWO WEEKS
     Route: 065
  16. ETOPOSIDE. [Suspect]
     Active Substance: ETOPOSIDE
     Indication: DISEASE PROGRESSION
     Dosage: UNK
     Route: 065
  17. DASATINIB. [Interacting]
     Active Substance: DASATINIB
     Indication: DISEASE PROGRESSION
     Dosage: 140 MILLIGRAM, ONCE A DAY
     Route: 065
  18. DOXORUBICIN [Suspect]
     Active Substance: DOXORUBICIN
     Indication: ACUTE LYMPHOCYTIC LEUKAEMIA
  19. CYCLOPHOSPHAMIDE. [Suspect]
     Active Substance: CYCLOPHOSPHAMIDE
     Indication: PHILADELPHIA CHROMOSOME POSITIVE
     Dosage: UNK
     Route: 065
  20. DOXORUBICIN [Suspect]
     Active Substance: DOXORUBICIN
     Indication: PHILADELPHIA CHROMOSOME POSITIVE
     Dosage: UNK
     Route: 065
  21. MITOXANTRONE [Suspect]
     Active Substance: MITOXANTRONE HYDROCHLORIDE
     Indication: PHILADELPHIA CHROMOSOME POSITIVE
     Dosage: 2 CYCLES
     Route: 065
     Dates: start: 201604
  22. CYTARABINE. [Suspect]
     Active Substance: CYTARABINE
     Indication: PHILADELPHIA CHROMOSOME POSITIVE
     Dosage: HIGH DOSE
     Route: 065

REACTIONS (4)
  - Pyrexia [Recovered/Resolved]
  - Drug interaction [Unknown]
  - Adenoviral haemorrhagic cystitis [Unknown]
  - Haematuria [Recovered/Resolved]
